FAERS Safety Report 9320345 (Version 1)
Quarter: 2013Q2

REPORT INFORMATION
  Report Type: Spontaneous
  Country: US (occurrence: US)
  Receive Date: 20130530
  Receipt Date: 20130530
  Transmission Date: 20140414
  Serious: Yes (Hospitalization)
  Sender: FDA-Public Use
  Company Number: US-ELI_LILLY_AND_COMPANY-US201305007064

PATIENT
  Sex: Female

DRUGS (3)
  1. FORTEO [Suspect]
     Indication: OSTEOPOROSIS
     Dosage: UNK, QD
     Dates: start: 201302, end: 20130517
  2. HYDROCODONE [Concomitant]
     Dosage: UNK
  3. CLONAZEPAM [Concomitant]
     Dosage: UNK

REACTIONS (3)
  - Panic attack [Unknown]
  - Chest pain [Unknown]
  - Dizziness [Unknown]
